FAERS Safety Report 7079346-7 (Version None)
Quarter: 2010Q4

REPORT INFORMATION
  Report Type: 
  Country: None (occurrence: None)
  Receive Date: 20101102
  Receipt Date: 20101025
  Transmission Date: 20110411
  Serious: Yes (Life-Threatening, Hospitalization, Other)
  Sender: FDA-Public Use
  Company Number: CN-BAYER-201043360GPV

PATIENT
  Age: 85 Year
  Sex: Female

DRUGS (5)
  1. AVELOX [Suspect]
     Indication: PNEUMONIA
     Dosage: TOTAL DAILY DOSE: 400 MG  UNIT DOSE: 400 MG
     Route: 041
     Dates: start: 20091227, end: 20100108
  2. AVELOX [Suspect]
     Dosage: TOTAL DAILY DOSE: 400 MG  UNIT DOSE: 400 MG
     Route: 041
     Dates: start: 20100112, end: 20100117
  3. PIPERACILLIN SODIUM/SULBACTAM SODIUM [Concomitant]
     Indication: PNEUMONIA
     Route: 041
     Dates: start: 20091227, end: 20100108
  4. IMIPENEM AND CILASTATIN [Concomitant]
     Indication: PNEUMONIA
     Route: 041
     Dates: start: 20100112
  5. POTASSIUM CHLORIDE [Concomitant]
     Indication: HYPOKALAEMIA

REACTIONS (3)
  - ADAMS-STOKES SYNDROME [None]
  - PALPITATIONS [None]
  - TORSADE DE POINTES [None]
